FAERS Safety Report 16639078 (Version 2)
Quarter: 2019Q3

REPORT INFORMATION
  Report Type: Spontaneous
  Country: US (occurrence: US)
  Receive Date: 20190726
  Receipt Date: 20190731
  Transmission Date: 20191004
  Serious: No
  Sender: FDA-Public Use
  Company Number: US-TEVA-2019-US-1083281

PATIENT
  Sex: Female

DRUGS (1)
  1. MODAFANIL TEVA [Suspect]
     Active Substance: MODAFINIL
     Indication: SOMNOLENCE
     Dosage: 1.5 TABLETS
     Route: 048
     Dates: start: 201812

REACTIONS (6)
  - Anger [Unknown]
  - Therapeutic product effect decreased [Unknown]
  - Dissociation [Unknown]
  - Headache [Unknown]
  - Vision blurred [Unknown]
  - Product substitution issue [Unknown]
